FAERS Safety Report 4854490-0 (Version None)
Quarter: 2005Q4

REPORT INFORMATION
  Report Type: 
  Country: None (occurrence: None)
  Receive Date: 20051213
  Receipt Date: 20051128
  Transmission Date: 20060501
  Serious: Yes (Hospitalization)
  Sender: FDA-Public Use
  Company Number: BR-2005-025317

PATIENT
  Age: 20 Year
  Sex: Male

DRUGS (1)
  1. BETASERON [Suspect]
     Indication: MULTIPLE SCLEROSIS
     Dosage: 1 ML, SUBCUTANEOUS
     Route: 058
     Dates: start: 20041010, end: 20050117

REACTIONS (6)
  - DIFFICULTY IN WALKING [None]
  - LUNG INJURY [None]
  - MOVEMENT DISORDER [None]
  - MUSCLE SPASTICITY [None]
  - ROAD TRAFFIC ACCIDENT [None]
  - TRAUMATIC BRAIN INJURY [None]
